FAERS Safety Report 8775019 (Version 2)
Quarter: 2013Q1

REPORT INFORMATION
  Report Type: Spontaneous
  Country: FR (occurrence: FR)
  Receive Date: 20120910
  Receipt Date: 20130329
  Transmission Date: 20140127
  Serious: Yes (Life-Threatening)
  Sender: FDA-Public Use
  Company Number: FR-GE HEALTHCARE MEDICAL DIAGNOSTICS-VISP-NO-1204S-0190

PATIENT
  Age: 68 Year
  Sex: Male

DRUGS (1)
  1. VISIPAQUE [Suspect]
     Indication: PRODUCT USED FOR UNKNOWN INDICATION
     Route: 042
     Dates: start: 20120321, end: 20120321

REACTIONS (8)
  - Disseminated intravascular coagulation [Recovered/Resolved]
  - Critical illness polyneuropathy [Recovering/Resolving]
  - Intestinal ischaemia [Recovered/Resolved]
  - Disturbance in attention [Recovering/Resolving]
  - Rash [Recovered/Resolved]
  - Shock [Recovered/Resolved]
  - Cardio-respiratory arrest [Recovered/Resolved]
  - Renal failure acute [Recovered/Resolved]
